FAERS Safety Report 19722328 (Version 1)
Quarter: 2021Q3

REPORT INFORMATION
  Report Type: Spontaneous
  Country: US (occurrence: US)
  Receive Date: 20210819
  Receipt Date: 20210819
  Transmission Date: 20211014
  Serious: Yes (Death)
  Sender: FDA-Public Use
  Company Number: None

PATIENT
  Age: 76 Year
  Sex: Female
  Weight: 98.84 kg

DRUGS (1)
  1. REGEN?COV [Suspect]
     Active Substance: CASIRIVIMAB\IMDEVIMAB
     Indication: SARS-COV-2 TEST POSITIVE
     Dates: start: 20210810, end: 20210810

REACTIONS (5)
  - Lung infiltration [None]
  - Blood pressure immeasurable [None]
  - Pulse absent [None]
  - Respiratory failure [None]
  - Unresponsive to stimuli [None]

NARRATIVE: CASE EVENT DATE: 20210811
